FAERS Safety Report 19421088 (Version 7)
Quarter: 2021Q3

REPORT INFORMATION
  Report Type: Report from Study
  Country: JP (occurrence: JP)
  Receive Date: 20210615
  Receipt Date: 20210831
  Transmission Date: 20211014
  Serious: Yes (Hospitalization)
  Sender: FDA-Public Use
  Company Number: JP-UCBSA-2021027834

PATIENT
  Age: 3 Month
  Sex: Female
  Weight: 8 kg

DRUGS (16)
  1. LEVETIRACETAM. [Suspect]
     Active Substance: LEVETIRACETAM
     Indication: PARTIAL SEIZURES
     Dosage: 14 MILLIGRAM/KILOGRAM/DAY
     Route: 048
     Dates: start: 20210419
  2. CARBAMAZEPINE. [Concomitant]
     Active Substance: CARBAMAZEPINE
     Dosage: 40 MILLIGRAM DAILY
     Route: 048
     Dates: start: 20210609
  3. CORTROSYN [TETRACOSACTIDE ACETATE] [Concomitant]
     Dosage: DAILY
     Dates: start: 20210624, end: 20210630
  4. LEVETIRACETAM. [Suspect]
     Active Substance: LEVETIRACETAM
     Dosage: 294 MILLIGRAM PER DAY
     Route: 048
     Dates: start: 20210720, end: 20210823
  5. INCREMIN [FERRIC PYROPHOSPHATE] [Concomitant]
     Active Substance: FERRIC PYROPHOSPHATE
     Indication: IRON DEFICIENCY ANAEMIA
     Dosage: 2 MILLILITER, 2X/DAY (BID)
     Route: 048
     Dates: start: 20210405
  6. LEVETIRACETAM. [Suspect]
     Active Substance: LEVETIRACETAM
     Dosage: 336 MILLIGRAM PER DAY
     Route: 048
     Dates: start: 20210824
  7. CARBAMAZEPINE. [Concomitant]
     Active Substance: CARBAMAZEPINE
     Dosage: 30 MG DAILY
     Route: 048
     Dates: start: 20210612
  8. CARBAMAZEPINE. [Concomitant]
     Active Substance: CARBAMAZEPINE
     Dosage: 15 MG DAILY
     Route: 048
     Dates: start: 20210615, end: 20210617
  9. CORTROSYN [TETRACOSACTIDE ACETATE] [Concomitant]
     Dosage: ALTERNATE?DAY ADMINISTRATION
     Dates: start: 20210702, end: 20210706
  10. LEVETIRACETAM. [Suspect]
     Active Substance: LEVETIRACETAM
     Dosage: 28 MILLIGRAM/KILOGRAM PER DAY
     Route: 048
     Dates: start: 20210430
  11. CARBAMAZEPINE. [Concomitant]
     Active Substance: CARBAMAZEPINE
     Indication: EPILEPSY
     Dosage: 50 MILLIGRAM, 2X/DAY (BID)
     Route: 048
     Dates: start: 20210413
  12. LEVETIRACETAM. [Suspect]
     Active Substance: LEVETIRACETAM
     Dosage: 42 MILLIGRAM/KILOGRAM PER DAY
     Route: 048
     Dates: start: 20210518, end: 20210719
  13. ALCLOMETASONE DIPROPIONATE. [Concomitant]
     Active Substance: ALCLOMETASONE DIPROPIONATE
     Indication: ECZEMA INFANTILE
     Dosage: UNK
     Dates: start: 20210601
  14. CORTROSYN [TETRACOSACTIDE ACETATE] [Concomitant]
     Indication: INFANTILE SPASMS
     Dosage: 0.15 MILLIGRAM, EV 2 DAYS (QOD)
     Route: 030
     Dates: start: 20210609, end: 20210621
  15. CORTROSYN [TETRACOSACTIDE ACETATE] [Concomitant]
     Dosage: UNK
     Dates: start: 20210709, end: 20210718
  16. WHITE PETROLATUM [Concomitant]
     Active Substance: PETROLATUM
     Indication: ECZEMA INFANTILE
     Dosage: UNK
     Dates: start: 20210601

REACTIONS (2)
  - Infantile spasms [Not Recovered/Not Resolved]
  - Blood pressure increased [Recovered/Resolved]

NARRATIVE: CASE EVENT DATE: 20210604
